FAERS Safety Report 5862225-8 (Version None)
Quarter: 2008Q3

REPORT INFORMATION
  Report Type: 
  Country: None (occurrence: None)
  Receive Date: 20080828
  Receipt Date: 20080819
  Transmission Date: 20090109
  Serious: Yes (Hospitalization)
  Sender: FDA-Public Use
  Company Number: ES-BAYER-200824664GPV

PATIENT
  Age: 43 Year
  Sex: Male

DRUGS (19)
  1. ZEVALIN [Suspect]
     Indication: B-CELL LYMPHOMA
     Route: 042
     Dates: start: 20080606, end: 20080606
  2. YTRACIS [Suspect]
     Indication: B-CELL LYMPHOMA
     Route: 042
     Dates: start: 20080606, end: 20080606
  3. FLUDARABINE [Suspect]
     Indication: B-CELL LYMPHOMA
  4. RITUXIMAB [Suspect]
     Indication: B-CELL LYMPHOMA
     Route: 042
     Dates: start: 20080606, end: 20080606
  5. RITUXIMAB [Suspect]
     Route: 042
     Dates: start: 20080530, end: 20080530
  6. MELPHALAN [Suspect]
     Indication: B-CELL LYMPHOMA
  7. THIOTEPA [Suspect]
     Indication: B-CELL LYMPHOMA
  8. CORTICOIDS [Concomitant]
     Dates: end: 20050101
  9. ACYCLOVIR [Concomitant]
     Indication: ANTIVIRAL PROPHYLAXIS
     Dosage: UNIT DOSE: 800 MG
     Route: 048
     Dates: start: 20080612
  10. FLUCONAZOLE [Concomitant]
     Indication: ANTIFUNGAL PROPHYLAXIS
     Dosage: UNIT DOSE: 400 MG
     Route: 048
     Dates: start: 20080612
  11. AMBINEB [Concomitant]
     Indication: ANTIFUNGAL PROPHYLAXIS
     Dates: start: 20080615
  12. CICLOSPORINA A [Concomitant]
     Indication: PROPHYLAXIS AGAINST GRAFT VERSUS HOST DISEASE
     Dosage: UNIT DOSE: 90 MG
     Route: 048
     Dates: start: 20080612
  13. LORAZEPAM [Concomitant]
     Indication: INSOMNIA
     Dosage: UNIT DOSE: 1 MG
     Route: 048
     Dates: start: 20080612
  14. FOLIC ACID [Concomitant]
     Indication: VITAMIN SUPPLEMENTATION
     Route: 048
     Dates: start: 20080711
  15. HIDROPOLIVIT [Concomitant]
     Indication: VITAMIN SUPPLEMENTATION
     Route: 048
     Dates: start: 20080711
  16. URSOCHOL [Concomitant]
     Indication: PROPHYLAXIS
     Route: 048
     Dates: start: 20080627
  17. CODEINE PHOSPHATE [Concomitant]
     Indication: ANALGESIC THERAPY
     Route: 048
     Dates: start: 20080614
  18. PENTAMIDINE [Concomitant]
     Indication: ANTIFUNGAL PROPHYLAXIS
     Dates: start: 20080718
  19. ZYRTEC [Concomitant]
     Indication: ANTIALLERGIC THERAPY
     Route: 048
     Dates: start: 20080810

REACTIONS (1)
  - GRAFT VERSUS HOST DISEASE [None]
